FAERS Safety Report 19127459 (Version 1)
Quarter: 2021Q2

REPORT INFORMATION
  Report Type: Spontaneous
  Country: US (occurrence: US)
  Receive Date: 20210413
  Receipt Date: 20210413
  Transmission Date: 20210717
  Serious: Yes (Death)
  Sender: FDA-Public Use
  Company Number: None

PATIENT
  Age: 41 Year
  Sex: Male
  Weight: 122.4 kg

DRUGS (6)
  1. FLUOROURACIL. [Concomitant]
     Active Substance: FLUOROURACIL
     Dates: start: 20210122, end: 20210322
  2. IRINOTECAN [Suspect]
     Active Substance: IRINOTECAN
  3. FLUOROURACIL. [Suspect]
     Active Substance: FLUOROURACIL
  4. IRINOTECAN [Suspect]
     Active Substance: IRINOTECAN
  5. FOLFIRI [Concomitant]
     Active Substance: FLUOROURACIL\IRINOTECAN\LEUCOVORIN
  6. LEUCOVORIN CALCIUM. [Suspect]
     Active Substance: LEUCOVORIN CALCIUM

REACTIONS (3)
  - Blood bilirubin increased [None]
  - Pulse absent [None]
  - Disease progression [None]

NARRATIVE: CASE EVENT DATE: 20210322
